FAERS Safety Report 23722254 (Version 1)
Quarter: 2024Q2

REPORT INFORMATION
  Report Type: Spontaneous
  Country: US (occurrence: US)
  Receive Date: 20240409
  Receipt Date: 20240409
  Transmission Date: 20240716
  Serious: Yes (Hospitalization, Other)
  Sender: FDA-Public Use
  Company Number: US-BRISTOL-MYERS SQUIBB COMPANY-2024-054027

PATIENT
  Age: 82 Year
  Sex: Female
  Weight: 55.79 kg

DRUGS (2)
  1. ONUREG [Suspect]
     Active Substance: AZACITIDINE
     Indication: Acute myeloid leukaemia
     Dosage: 300MG TABLET DAILY FOR 14 DAYS ON, THEN 14 DAYS OFF
     Route: 048
  2. VENCLEXTA [Concomitant]
     Active Substance: VENETOCLAX
     Indication: Product used for unknown indication
     Dosage: DAILY
     Route: 048
     Dates: start: 20220421

REACTIONS (2)
  - Acute respiratory failure [Recovering/Resolving]
  - Leukaemia [Recovering/Resolving]
